FAERS Safety Report 14757250 (Version 2)
Quarter: 2018Q2

REPORT INFORMATION
  Report Type: Spontaneous
  Country: US (occurrence: US)
  Receive Date: 20180413
  Receipt Date: 20180413
  Transmission Date: 20180711
  Serious: Yes (Disabling, Other)
  Sender: FDA-Public Use
  Company Number: US-JNJFOC-20180414284

PATIENT
  Age: 46 Year
  Sex: Female

DRUGS (1)
  1. INVOKANA [Suspect]
     Active Substance: CANAGLIFLOZIN
     Indication: TYPE 2 DIABETES MELLITUS
     Dosage: IN VARYING DOSES OF 300 MG AND 100 MG
     Route: 048
     Dates: start: 20160614, end: 20160811

REACTIONS (5)
  - Leg amputation [Unknown]
  - Skin ulcer [Unknown]
  - Osteomyelitis [Unknown]
  - Foot deformity [Unknown]
  - Cellulitis [Unknown]

NARRATIVE: CASE EVENT DATE: 20161108
